FAERS Safety Report 7968250-5 (Version None)
Quarter: 2011Q4

REPORT INFORMATION
  Report Type: 
  Country: None (occurrence: None)
  Receive Date: 20111209
  Receipt Date: 20111205
  Transmission Date: 20120403
  Serious: Yes (Hospitalization)
  Sender: FDA-Public Use
  Company Number: PHEH2011US06485

PATIENT
  Sex: Female

DRUGS (6)
  1. HYPERTONIC SOLUTIONS [Concomitant]
  2. OMEPRAZOLE [Concomitant]
     Indication: GASTROOESOPHAGEAL REFLUX DISEASE
  3. ADVAIR DISKUS 100/50 [Concomitant]
  4. MEROPENEM [Concomitant]
  5. TOBI [Suspect]
     Indication: CYSTIC FIBROSIS
     Dosage: 300 MG, BID Q 28 DAY
     Dates: start: 20110601
  6. PULMOZYME [Concomitant]

REACTIONS (7)
  - DECREASED APPETITE [None]
  - FORCED EXPIRATORY VOLUME ABNORMAL [None]
  - INCREASED BRONCHIAL SECRETION [None]
  - MALAISE [None]
  - RHINORRHOEA [None]
  - WEIGHT DECREASED [None]
  - PRODUCTIVE COUGH [None]
